FAERS Safety Report 9809376 (Version 2)
Quarter: 2014Q1

REPORT INFORMATION
  Report Type: Spontaneous
  Country: US (occurrence: US)
  Receive Date: 20140110
  Receipt Date: 20140114
  Transmission Date: 20141002
  Serious: Yes (Hospitalization)
  Sender: FDA-Public Use
  Company Number: US-B.I. PHARMACEUTICALS,INC./RIDGEFIELD-2014-BI-00982BP

PATIENT
  Age: 68 Year
  Sex: Male
  Weight: 61 kg

DRUGS (9)
  1. SPIRIVA [Suspect]
     Indication: CHRONIC OBSTRUCTIVE PULMONARY DISEASE
     Dosage: 18 MCG
     Route: 055
     Dates: start: 2012
  2. DILTIAZEM ER [Concomitant]
     Indication: HYPERTENSION
     Dosage: 240 MG
     Route: 048
  3. CRESTOR [Concomitant]
     Indication: BLOOD CHOLESTEROL INCREASED
     Dosage: 10 MG
     Route: 048
  4. MAGNESIUM OXIDE [Concomitant]
     Dosage: 800 MG
     Route: 048
  5. PROVENTIL [Concomitant]
     Dosage: FORMULATION: INHALATION SPRAY
     Route: 055
  6. SYMBICORT [Concomitant]
     Indication: CHRONIC OBSTRUCTIVE PULMONARY DISEASE
     Dosage: FORMULATION: INHALATION SPRAY; STRENGTH: 160/4.5 MCG; DAILY DOSE: 320/9 MCG
     Route: 055
  7. ZETIA [Concomitant]
     Indication: BLOOD CHOLESTEROL INCREASED
     Dosage: 10 MG
     Route: 048
  8. VALSARTAN/HCTZ [Concomitant]
     Indication: HYPERTENSION
     Dosage: STRENGTH: 160/25 MG; DAILY DOSE: 160/25 MG
     Route: 048
  9. GABAPENTIN [Concomitant]
     Indication: HERPES ZOSTER
     Dosage: 1800 MG
     Route: 048

REACTIONS (2)
  - Pneumothorax [Recovered/Resolved]
  - Pneumothorax [Recovered/Resolved]
